FAERS Safety Report 26207100 (Version 1)
Quarter: 2025Q4

REPORT INFORMATION
  Report Type: Report from Study
  Country: TR (occurrence: TR)
  Receive Date: 20251229
  Receipt Date: 20251229
  Transmission Date: 20260118
  Serious: Yes (Other)
  Sender: RANBAXY
  Company Number: TR-SUN PHARMACEUTICAL INDUSTRIES INC-2025R1-543947

PATIENT
  Age: 52 Year
  Sex: Female

DRUGS (1)
  1. LORAZEPAM [Suspect]
     Active Substance: LORAZEPAM
     Indication: Frontotemporal dementia
     Dosage: 2.5 MG/DX
     Route: 048

REACTIONS (1)
  - Therapy partial responder [Unknown]
